FAERS Safety Report 18547609 (Version 2)
Quarter: 2021Q3

REPORT INFORMATION
  Report Type: Spontaneous
  Country: JP (occurrence: JP)
  Receive Date: 20201125
  Receipt Date: 20210923
  Transmission Date: 20211014
  Serious: Yes (Hospitalization)
  Sender: FDA-Public Use
  Company Number: JP-FERRINGPH-2020FE08323

PATIENT
  Age: 75 Year
  Sex: Female

DRUGS (14)
  1. VASOPRESSIN. [Suspect]
     Active Substance: VASOPRESSIN
     Route: 041
  2. CORTISONE ACETATE. [Concomitant]
     Active Substance: CORTISONE ACETATE
     Dosage: 37.5 MG
     Route: 065
  3. ZOLPIDEM TARTATE [Concomitant]
     Active Substance: ZOLPIDEM TARTRATE
     Dosage: 5 MG
     Route: 065
  4. PRECIPITATED CALCIUM CARBONATE [Concomitant]
     Active Substance: CALCIUM CARBONATE
     Dosage: 2 DF
     Route: 065
  5. FAMOTIDINE. [Concomitant]
     Active Substance: FAMOTIDINE
     Dosage: 20 MG
     Route: 065
  6. ALPRAZOLAM. [Concomitant]
     Active Substance: ALPRAZOLAM
     Dosage: 2.4 MG
     Route: 065
  7. DESMOPRESSIN KYOWA [Suspect]
     Active Substance: DESMOPRESSIN
     Indication: DIABETES INSIPIDUS
     Dosage: 2.5 UG, DAILY
     Route: 065
  8. SOMATROPIN. [Concomitant]
     Active Substance: SOMATROPIN
     Dosage: 0.1 MG
     Route: 065
  9. DESMOPRESSIN KYOWA [Suspect]
     Active Substance: DESMOPRESSIN
     Indication: DIABETES INSIPIDUS
     Dosage: 10 UG, DAILY
  10. LEVOTHYROXINE SODIUM;LIOTHYRONINE HYDROCHLORIDE [Concomitant]
     Dosage: 75 MG
     Route: 065
  11. LIMAPROST ALFADEX [Concomitant]
     Active Substance: LIMAPROST
     Dosage: 10 UG
     Route: 065
  12. MINIRINMELT [Suspect]
     Active Substance: DESMOPRESSIN ACETATE
     Indication: DIABETES INSIPIDUS
     Dosage: 60 UG, DAILY
     Route: 065
  13. PRAVASTATIN SODIUM. [Concomitant]
     Active Substance: PRAVASTATIN SODIUM
     Dosage: 10 MG
     Route: 065
  14. POLYCARBOPHIL CALCIUM [Concomitant]
     Active Substance: CALCIUM POLYCARBOPHIL
     Dosage: 1500 MG
     Route: 065

REACTIONS (3)
  - Therapeutic product effect decreased [Recovered/Resolved]
  - Hypernatraemia [Recovered/Resolved]
  - Drug interaction [Recovered/Resolved]
